FAERS Safety Report 7550996-4 (Version None)
Quarter: 2011Q2

REPORT INFORMATION
  Report Type: 
  Country: None (occurrence: None)
  Receive Date: 20110616
  Receipt Date: 20110309
  Transmission Date: 20111010
  Serious: No
  Sender: FDA-Public Use
  Company Number: US-MYLANLABS-2011S1005270

PATIENT
  Age: 59 Year
  Sex: Female

DRUGS (1)
  1. HYDROXYCHLOROQUINE SULFATE [Suspect]
     Indication: LYME DISEASE
     Route: 048
     Dates: start: 20110201, end: 20110306

REACTIONS (2)
  - SOMNOLENCE [None]
  - MUSCULAR WEAKNESS [None]
